FAERS Safety Report 15738361 (Version 2)
Quarter: 2019Q1

REPORT INFORMATION
  Report Type: Spontaneous
  Country: CA (occurrence: CA)
  Receive Date: 20181219
  Receipt Date: 20190307
  Transmission Date: 20190417
  Serious: Yes (Other)
  Sender: FDA-Public Use
  Company Number: CA-CELLTRION INC.-2018CA018727

PATIENT

DRUGS (9)
  1. METHOTREXATE. [Concomitant]
     Active Substance: METHOTREXATE
     Dosage: 15 MG, 1/WEEK
     Route: 048
  2. FERAMAX [Concomitant]
     Active Substance: IRON\POLYSACCHARIDES
     Dosage: 1 TABLET TWICE DAILY
  3. PREDNISONE. [Concomitant]
     Active Substance: PREDNISONE
     Dosage: 40 MG, TAPERING DOSE
     Route: 048
     Dates: start: 20180301
  4. INFLECTRA [Suspect]
     Active Substance: INFLIXIMAB-DYYB
     Indication: CROHN^S DISEASE
     Dosage: 400 MG, AT 2, 6 WEEKS, THEN EVERY 8 WEEKS
     Route: 042
     Dates: start: 20180301
  5. INFLECTRA [Suspect]
     Active Substance: INFLIXIMAB-DYYB
     Dosage: 400 MG, AT 2, 6 WEEKS, THEN EVERY 8 WEEKS
     Route: 042
     Dates: start: 20180412
  6. FOLIC ACID. [Concomitant]
     Active Substance: FOLIC ACID
     Dosage: 1 G, DAILY
     Route: 048
  7. MIDAZOLAM [Concomitant]
     Active Substance: MIDAZOLAM HYDROCHLORIDE
     Dosage: 2.5 MG
     Route: 042
  8. FENTANYL. [Concomitant]
     Active Substance: FENTANYL
     Dosage: 75 MCG
     Route: 042
  9. INFLECTRA [Suspect]
     Active Substance: INFLIXIMAB-DYYB
     Dosage: 400 MG, AT 2, 6 WEEKS, THEN EVERY 8 WEEKS
     Route: 042
     Dates: start: 20180607

REACTIONS (18)
  - Anal fissure [Unknown]
  - Colitis [Not Recovered/Not Resolved]
  - Proctalgia [Recovered/Resolved]
  - Arthralgia [Unknown]
  - Rectal stenosis [Unknown]
  - Rectal polyp [Recovered/Resolved]
  - Enteritis [Not Recovered/Not Resolved]
  - Large intestinal stenosis [Unknown]
  - Fistula discharge [Recovered/Resolved]
  - Loss of personal independence in daily activities [Unknown]
  - Diarrhoea [Recovering/Resolving]
  - Faecal calprotectin increased [Not Recovered/Not Resolved]
  - Product use issue [Unknown]
  - Drug level decreased [Unknown]
  - Condition aggravated [Unknown]
  - Anal fistula [Recovered/Resolved]
  - Gastrointestinal inflammation [Not Recovered/Not Resolved]
  - Anal haemorrhage [Recovered/Resolved]
